FAERS Safety Report 6224045-4 (Version None)
Quarter: 2009Q2

REPORT INFORMATION
  Report Type: 
  Country: None (occurrence: None)
  Receive Date: 20090612
  Receipt Date: 20090306
  Transmission Date: 20091009
  Serious: No
  Sender: FDA-Public Use
  Company Number: US-ABBOTT-09P-163-0561268-00

PATIENT
  Sex: Male
  Weight: 68.1 kg

DRUGS (6)
  1. HUMIRA [Suspect]
     Indication: CROHN'S DISEASE
     Dates: start: 20070305
  2. HUMIRA [Suspect]
  3. HUMIRA [Suspect]
  4. HUMIRA [Suspect]
     Dates: end: 20090219
  5. HUMIRA [Suspect]
     Indication: CROHN'S DISEASE
     Dates: start: 20090219
  6. HUMIRA [Suspect]

REACTIONS (2)
  - CROHN'S DISEASE [None]
  - INCORRECT DOSE ADMINISTERED [None]
